FAERS Safety Report 6477466-9 (Version None)
Quarter: 2009Q4

REPORT INFORMATION
  Report Type: 
  Country: None (occurrence: None)
  Receive Date: 20091207
  Receipt Date: 20091119
  Transmission Date: 20100525
  Serious: Yes (Hospitalization)
  Sender: FDA-Public Use
  Company Number: JP-SANOFI-AVENTIS-2009SA002786

PATIENT

DRUGS (4)
  1. ARAVA [Suspect]
     Route: 048
  2. RIMATIL [Suspect]
     Route: 048
     Dates: end: 20091105
  3. LOXONIN [Suspect]
     Route: 048
     Dates: end: 20091105
  4. PREDNISOLONE [Suspect]
     Route: 048
     Dates: end: 20091105

REACTIONS (2)
  - GASTRIC PERFORATION [None]
  - HISTIOCYTOSIS HAEMATOPHAGIC [None]
